FAERS Safety Report 4696128-1 (Version None)
Quarter: 2005Q2

REPORT INFORMATION
  Report Type: 
  Country: None (occurrence: None)
  Receive Date: 20050620
  Receipt Date: 20050606
  Transmission Date: 20051028
  Serious: Yes (Hospitalization)
  Sender: FDA-Public Use
  Company Number: 2005084328

PATIENT
  Age: 61 Year
  Sex: Male

DRUGS (1)
  1. IRINOTECAN HCL [Suspect]
     Indication: COLORECTAL CANCER METASTATIC
     Dosage: 600 MG (CYCLIC), INTRAVENOUS
     Route: 042
     Dates: start: 20050502, end: 20050502

REACTIONS (1)
  - NEUROPATHY PERIPHERAL [None]
